FAERS Safety Report 20497681 (Version 1)
Quarter: 2022Q1

REPORT INFORMATION
  Report Type: Spontaneous
  Country: US (occurrence: US)
  Receive Date: 20220222
  Receipt Date: 20220222
  Transmission Date: 20220423
  Serious: Yes (Death, Disabling, Other)
  Sender: FDA-Public Use
  Company Number: US-PURDUE-USA-2003-0005189

PATIENT
  Sex: Male
  Weight: 90.703 kg

DRUGS (14)
  1. OXYCONTIN [Suspect]
     Active Substance: OXYCODONE HYDROCHLORIDE
     Indication: Pain
     Dosage: 80 MG, BID
     Route: 065
  2. OXYCONTIN [Suspect]
     Active Substance: OXYCODONE HYDROCHLORIDE
     Dosage: 80 MG, Q6H
  3. TEGRETOL [Suspect]
     Active Substance: CARBAMAZEPINE
     Indication: Product used for unknown indication
     Dosage: 200 MG, BID
     Route: 065
  4. NEURONTIN [Concomitant]
     Active Substance: GABAPENTIN
     Indication: Product used for unknown indication
     Dosage: 800 MG, QID
     Route: 065
  5. ELAVIL                             /00002202/ [Concomitant]
     Indication: Product used for unknown indication
     Dosage: 50 MG, NOCTE
     Route: 065
  6. AMBIEN [Concomitant]
     Active Substance: ZOLPIDEM TARTRATE
     Indication: Product used for unknown indication
     Dosage: 10 MG, NOCTE
     Route: 065
  7. CELEBREX [Concomitant]
     Active Substance: CELECOXIB
     Indication: Product used for unknown indication
     Dosage: 200 MG, UNK
     Route: 065
  8. CELEXA                             /00582602/ [Concomitant]
     Indication: Product used for unknown indication
     Dosage: 200 MG, BID
  9. PRILOSEC                           /00661201/ [Concomitant]
     Indication: Product used for unknown indication
     Dosage: UNK, UNK
  10. TRILEPTAL [Concomitant]
     Active Substance: OXCARBAZEPINE
     Indication: Product used for unknown indication
     Dosage: 600 MG, TID
  11. ZANAFLEX [Concomitant]
     Active Substance: TIZANIDINE HYDROCHLORIDE
     Indication: Product used for unknown indication
     Dosage: 16 MG, NOCTE
  12. TOPAMAX [Concomitant]
     Active Substance: TOPIRAMATE
     Indication: Product used for unknown indication
  13. ZONEGRAN [Concomitant]
     Active Substance: ZONISAMIDE
     Indication: Product used for unknown indication
  14. AMITRIPTYLINE [Concomitant]
     Active Substance: AMITRIPTYLINE
     Indication: Product used for unknown indication

REACTIONS (24)
  - Overdose [Fatal]
  - Arrhythmia [Fatal]
  - Pulmonary oedema [Fatal]
  - Pulmonary congestion [Fatal]
  - Tooth impacted [Unknown]
  - Mouth cyst [Unknown]
  - Paraplegia [Recovering/Resolving]
  - Condition aggravated [Recovering/Resolving]
  - Muscular weakness [Unknown]
  - Flashback [Unknown]
  - Nightmare [Unknown]
  - Constipation [Unknown]
  - Faeces hard [Unknown]
  - Pain [Unknown]
  - Inadequate analgesia [Unknown]
  - Somnolence [Unknown]
  - Dyspepsia [Unknown]
  - Insomnia [Unknown]
  - Drug tolerance [Unknown]
  - Anxiety [Unknown]
  - Depression [Unknown]
  - Diplopia [Unknown]
  - Oropharyngeal pain [Unknown]
  - Dizziness [Unknown]
